FAERS Safety Report 13097473 (Version 1)
Quarter: 2017Q1

REPORT INFORMATION
  Report Type: Spontaneous
  Country: US (occurrence: US)
  Receive Date: 20170109
  Receipt Date: 20170109
  Transmission Date: 20170428
  Serious: No
  Sender: FDA-Public Use
  Company Number: US-JNJFOC-20161224957

PATIENT
  Sex: Female
  Weight: 98.43 kg

DRUGS (3)
  1. FOLIC ACID. [Concomitant]
     Active Substance: FOLIC ACID
     Route: 065
  2. STELARA [Suspect]
     Active Substance: USTEKINUMAB
     Indication: PSORIATIC ARTHROPATHY
     Route: 058
     Dates: start: 20161129
  3. METHOTREXATE. [Concomitant]
     Active Substance: METHOTREXATE
     Route: 065

REACTIONS (13)
  - Arthralgia [Unknown]
  - Feeling abnormal [Unknown]
  - Joint range of motion decreased [Unknown]
  - Insomnia [Unknown]
  - Pain [Unknown]
  - Back pain [Unknown]
  - Musculoskeletal pain [Unknown]
  - Muscular weakness [Unknown]
  - Chills [Unknown]
  - Sneezing [Unknown]
  - Drug ineffective [Unknown]
  - Injection site bruising [Unknown]
  - Sinusitis [Unknown]

NARRATIVE: CASE EVENT DATE: 2016
